FAERS Safety Report 11476584 (Version 1)
Quarter: 2015Q3

REPORT INFORMATION
  Report Type: Spontaneous
  Country: US (occurrence: US)
  Receive Date: 20150909
  Receipt Date: 20150909
  Transmission Date: 20151125
  Serious: No
  Sender: FDA-Public Use
  Company Number: US-JAZZ-2014-US-010326

PATIENT
  Sex: Male

DRUGS (5)
  1. XYREM [Suspect]
     Active Substance: SODIUM OXYBATE
     Indication: CATAPLEXY
     Dosage: DOSE ADJUSTMENTS
     Route: 048
  2. XYREM [Suspect]
     Active Substance: SODIUM OXYBATE
     Indication: NARCOLEPSY
     Dosage: 2.25 G, BID
     Route: 048
     Dates: start: 2013, end: 201312
  3. XYREM [Suspect]
     Active Substance: SODIUM OXYBATE
     Dosage: 4.5 G, BID
     Route: 048
     Dates: start: 201403
  4. CONCERTA [Concomitant]
     Active Substance: METHYLPHENIDATE HYDROCHLORIDE
     Dosage: 54 MG, ATERNOON DOSE
     Route: 048
  5. CONCERTA [Concomitant]
     Active Substance: METHYLPHENIDATE HYDROCHLORIDE
     Indication: CATAPLEXY
     Dosage: 36 MG, MORNING DOSE
     Route: 048

REACTIONS (11)
  - Wrong technique in product usage process [Unknown]
  - Abnormal behaviour [Not Recovered/Not Resolved]
  - Chest pain [Not Recovered/Not Resolved]
  - Somnolence [Not Recovered/Not Resolved]
  - Enuresis [Not Recovered/Not Resolved]
  - Intentional product use issue [Unknown]
  - Nightmare [Not Recovered/Not Resolved]
  - Sleep talking [Not Recovered/Not Resolved]
  - Off label use [Unknown]
  - Mood altered [Not Recovered/Not Resolved]
  - Somnambulism [Not Recovered/Not Resolved]
